FAERS Safety Report 9750892 (Version 3)
Quarter: 2013Q4

REPORT INFORMATION
  Report Type: Spontaneous
  Country: US (occurrence: US)
  Receive Date: 20131212
  Receipt Date: 20131213
  Transmission Date: 20140711
  Serious: No
  Sender: FDA-Public Use
  Company Number: US-TEVA-401904USA

PATIENT
  Age: 23 Year
  Sex: Female
  Weight: 54.03 kg

DRUGS (3)
  1. PARAGARD 380A [Suspect]
     Indication: CONTRACEPTION
     Route: 015
     Dates: start: 20130321, end: 20130429
  2. LOPROXEN [Concomitant]
     Indication: PAIN
  3. TOPAMAX [Concomitant]
     Indication: MIGRAINE

REACTIONS (8)
  - Metrorrhagia [Unknown]
  - Pain [Recovered/Resolved]
  - Device expulsion [Recovered/Resolved]
  - Medical device complication [Unknown]
  - Pelvic pain [Unknown]
  - Pain in extremity [Unknown]
  - Back pain [Unknown]
  - Abdominal pain [Recovered/Resolved]
